FAERS Safety Report 5459517-3 (Version None)
Quarter: 2007Q3

REPORT INFORMATION
  Report Type: 
  Country: None (occurrence: None)
  Receive Date: 20070919
  Receipt Date: 20070918
  Transmission Date: 20080115
  Serious: Yes (Hospitalization)
  Sender: FDA-Public Use
  Company Number: B0487650A

PATIENT
  Age: 58 Year
  Sex: Female

DRUGS (6)
  1. AMOXICILLIN TRIHYDRATE [Suspect]
     Indication: DRUG USE FOR UNKNOWN INDICATION
     Dosage: 500MG PER DAY
     Route: 048
     Dates: start: 20070625, end: 20070629
  2. FLAGYL [Suspect]
     Indication: DRUG USE FOR UNKNOWN INDICATION
     Dosage: 750MG PER DAY
     Route: 048
     Dates: start: 20070629, end: 20070702
  3. CALTAN [Concomitant]
     Dosage: 1500MG PER DAY
     Route: 048
     Dates: start: 20070628
  4. ALFAROL [Concomitant]
     Dosage: .25MCG PER DAY
     Route: 048
     Dates: start: 20070628
  5. DIOVAN [Concomitant]
     Dosage: 160MG PER DAY
     Route: 048
     Dates: start: 20070628
  6. CALBLOCK [Concomitant]
     Dosage: 32MG PER DAY
     Route: 048
     Dates: start: 20070623

REACTIONS (3)
  - PSEUDOMEMBRANOUS COLITIS [None]
  - RED BLOOD CELL COUNT DECREASED [None]
  - WHITE BLOOD CELL COUNT DECREASED [None]
